FAERS Safety Report 5241671-X (Version None)
Quarter: 2007Q1

REPORT INFORMATION
  Report Type: 
  Country: None (occurrence: None)
  Receive Date: 20070220
  Receipt Date: 20070207
  Transmission Date: 20070707
  Serious: Yes (Hospitalization)
  Sender: FDA-Public Use
  Company Number: US-ELI_LILLY_AND_COMPANY-US200702001389

PATIENT
  Sex: Male

DRUGS (3)
  1. FORTEO [Suspect]
     Indication: OSTEOPOROSIS
     Dates: start: 20060101
  2. COUMADIN [Concomitant]
     Indication: STENT PLACEMENT
  3. ASPIRIN [Concomitant]
     Indication: STENT PLACEMENT

REACTIONS (5)
  - CEREBRAL HAEMORRHAGE [None]
  - FALL [None]
  - RIB FRACTURE [None]
  - SKULL FRACTURE [None]
  - UPPER LIMB FRACTURE [None]
